FAERS Safety Report 8071258-5 (Version None)
Quarter: 2012Q1

REPORT INFORMATION
  Report Type: 
  Country: None (occurrence: None)
  Receive Date: 20120125
  Receipt Date: 20120120
  Transmission Date: 20120608
  Serious: Yes (Hospitalization, Congenital Anomaly, Other)
  Sender: FDA-Public Use
  Company Number: US-PFIZER INC-2011105774

PATIENT
  Sex: Female
  Weight: 2.6 kg

DRUGS (10)
  1. ZOLOFT [Suspect]
     Dosage: UNK
     Route: 064
     Dates: start: 20040824
  2. MULTI-VITAMINS [Concomitant]
     Dosage: UNK
     Route: 064
  3. ZOLOFT [Suspect]
     Dosage: 50 MG, UNK
     Route: 064
     Dates: start: 20040415
  4. ZOLOFT [Suspect]
     Dosage: 100 MG, 2X/DAY
     Route: 064
     Dates: start: 20041007
  5. ZOLOFT [Suspect]
     Dosage: 100 MG, 2X/DAY
     Route: 064
     Dates: start: 20050203
  6. BUSPAR [Concomitant]
     Dosage: 15 MG, 2X/DAY
     Route: 064
  7. ZOLOFT [Suspect]
     Dosage: UNK
     Route: 064
     Dates: start: 20040715
  8. BUSPAR [Concomitant]
     Dosage: 30 MG, 2X/DAY
     Route: 064
     Dates: start: 20050402
  9. ZOLOFT [Suspect]
     Dosage: 100 MG, 1X/DAY
     Route: 064
     Dates: start: 20050801
  10. ZOLOFT [Suspect]
     Dosage: UNK
     Route: 064
     Dates: start: 20040605

REACTIONS (14)
  - DYSMORPHISM [None]
  - CONDUCTIVE DEAFNESS [None]
  - CELLULITIS [None]
  - CLEFT LIP [None]
  - NASAL CONGESTION [None]
  - CLEFT PALATE [None]
  - HAEMANGIOMA OF SKIN [None]
  - VOMITING [None]
  - MATERNAL EXPOSURE TIMING UNSPECIFIED [None]
  - OTITIS MEDIA [None]
  - PYREXIA [None]
  - DIARRHOEA [None]
  - SYNDACTYLY [None]
  - EAR INFECTION [None]
